FAERS Safety Report 7988110-3 (Version None)
Quarter: 2011Q4

REPORT INFORMATION
  Report Type: 
  Country: None (occurrence: None)
  Receive Date: 20111216
  Receipt Date: 20110708
  Transmission Date: 20120403
  Serious: Yes (Hospitalization)
  Sender: FDA-Public Use
  Company Number: US-BRISTOL-MYERS SQUIBB COMPANY-15806607

PATIENT
  Age: 72 Year
  Sex: Female

DRUGS (6)
  1. CYMBALTA [Concomitant]
  2. ABILIFY [Suspect]
     Indication: MAJOR DEPRESSION
     Dosage: ALSO TAKEN AS CONMED
     Route: 048
     Dates: start: 20100929, end: 20110301
  3. KLONOPIN [Concomitant]
  4. XANAX [Concomitant]
  5. TOPAMAX [Concomitant]
  6. TRAZODONE HCL [Concomitant]

REACTIONS (3)
  - ASTHENIA [None]
  - TREMOR [None]
  - DROOLING [None]
